FAERS Safety Report 9686635 (Version 1)
Quarter: 2013Q4

REPORT INFORMATION
  Report Type: Spontaneous
  Country: FR (occurrence: FR)
  Receive Date: 20131113
  Receipt Date: 20131113
  Transmission Date: 20140711
  Serious: Yes (Hospitalization)
  Sender: FDA-Public Use
  Company Number: FR-TEVA-443747ISR

PATIENT
  Age: 56 Year
  Sex: Female

DRUGS (7)
  1. CARBOPLATINE TEVA 10 MG/ML [Suspect]
     Indication: OVARIAN CANCER
     Route: 041
     Dates: start: 20130222, end: 20130222
  2. PACLITAXEL EBEWE [Suspect]
     Indication: OVARIAN CANCER
     Route: 041
     Dates: start: 20130222, end: 20130222
  3. ZOPHREN [Suspect]
     Indication: PREMEDICATION
     Route: 042
     Dates: start: 20130222, end: 20130222
  4. AVASTIN [Concomitant]
     Indication: OVARIAN CANCER
     Dates: start: 201210
  5. AZANTAC [Concomitant]
     Route: 042
     Dates: start: 20130222
  6. POLARAMINE [Concomitant]
     Route: 042
     Dates: start: 20130222
  7. SOLUMEDROL [Concomitant]
     Dates: start: 20130222

REACTIONS (6)
  - Hypotension [Recovered/Resolved]
  - Chills [Recovered/Resolved]
  - Malaise [Recovered/Resolved]
  - Burning sensation [Recovered/Resolved]
  - Paraesthesia [Recovered/Resolved]
  - Musculoskeletal pain [Recovered/Resolved]
